FAERS Safety Report 8419113-2 (Version None)
Quarter: 2012Q2

REPORT INFORMATION
  Report Type: 
  Country: None (occurrence: None)
  Receive Date: 20120607
  Receipt Date: 20120605
  Transmission Date: 20120825
  Serious: Yes (Other)
  Sender: FDA-Public Use
  Company Number: PHHY2012DE035581

PATIENT
  Sex: Male

DRUGS (4)
  1. BISOPROLOL FUMARATE [Concomitant]
     Dosage: 1 DF, QD
  2. CANDESARTAN CILEXETIL [Concomitant]
     Dosage: 1 DF, QD
  3. RASILEZ [Suspect]
     Indication: PROTEINURIA
     Dosage: 1 DF, QD
     Route: 048
     Dates: start: 20110701, end: 20120401
  4. ASPIRIN [Concomitant]
     Dosage: 1 DF, QD

REACTIONS (1)
  - PROTEINURIA [None]
